FAERS Safety Report 10134183 (Version 1)
Quarter: 2014Q2

REPORT INFORMATION
  Report Type: Spontaneous
  Country: US (occurrence: US)
  Receive Date: 20140428
  Receipt Date: 20140428
  Transmission Date: 20141212
  Serious: No
  Sender: FDA-Public Use
  Company Number: US-SANOFI-AVENTIS-2013SA076349

PATIENT
  Age: 67 Year
  Sex: Male
  Weight: 108 kg

DRUGS (3)
  1. ALLEGRA [Suspect]
     Indication: HYPERSENSITIVITY
     Route: 048
  2. ALL OTHER THERAPEUTIC PRODUCTS [Concomitant]
     Dates: start: 2005
  3. LISINOPRIL [Concomitant]
     Indication: BLOOD PRESSURE
     Dates: start: 2011

REACTIONS (1)
  - Drug ineffective [Unknown]
